FAERS Safety Report 5266913-6 (Version None)
Quarter: 2007Q1

REPORT INFORMATION
  Report Type: 
  Country: None (occurrence: None)
  Receive Date: 20070316
  Receipt Date: 20070305
  Transmission Date: 20070707
  Serious: Yes (Hospitalization)
  Sender: FDA-Public Use
  Company Number: JP-NOVOPROD-261374

PATIENT
  Age: 42 Year
  Sex: Female
  Weight: 54 kg

DRUGS (6)
  1. NOVOLIN R [Suspect]
     Indication: DIABETES MELLITUS INSULIN-DEPENDENT
     Dosage: 46 IU, UNK
     Route: 058
     Dates: start: 20070206, end: 20070218
  2. LIVALO [Concomitant]
  3. RISPERDAL [Concomitant]
  4. SILECE [Concomitant]
  5. CONTOMIN [Concomitant]
  6. MAGNESIUM OXIDE [Concomitant]

REACTIONS (1)
  - LIVER DISORDER [None]
